FAERS Safety Report 20751692 (Version 1)
Quarter: 2022Q2

REPORT INFORMATION
  Report Type: Spontaneous
  Country: CN (occurrence: CN)
  Receive Date: 20220426
  Receipt Date: 20220426
  Transmission Date: 20220721
  Serious: Yes (Other)
  Sender: FDA-Public Use
  Company Number: CN-NOVARTISPH-NVSC2022CN095055

PATIENT

DRUGS (1)
  1. TOBREX [Suspect]
     Active Substance: TOBRAMYCIN
     Indication: Corneal disorder
     Dosage: 1 DRP, QD (6 TIMES PER DAY)
     Route: 065

REACTIONS (2)
  - Ulcerative keratitis [Unknown]
  - Product use in unapproved indication [Unknown]
